FAERS Safety Report 20506951 (Version 2)
Quarter: 2022Q2

REPORT INFORMATION
  Report Type: Spontaneous
  Country: US (occurrence: US)
  Receive Date: 20220223
  Receipt Date: 20220421
  Transmission Date: 20220720
  Serious: Yes (Other)
  Sender: FDA-Public Use
  Company Number: US-PFIZER INC-202200268533

PATIENT
  Age: 61 Year
  Sex: Female
  Weight: 68.027 kg

DRUGS (1)
  1. CHANTIX [Suspect]
     Active Substance: VARENICLINE TARTRATE
     Indication: Smoking cessation therapy
     Dosage: UNK
     Dates: start: 202012

REACTIONS (1)
  - Intracranial aneurysm [Unknown]

NARRATIVE: CASE EVENT DATE: 20220101
